FAERS Safety Report 8501294-3 (Version None)
Quarter: 2012Q3

REPORT INFORMATION
  Report Type: 
  Country: None (occurrence: None)
  Receive Date: 20120710
  Receipt Date: 20120702
  Transmission Date: 20120928
  Serious: No
  Sender: FDA-Public Use
  Company Number: US-PFIZER INC-2012161373

PATIENT

DRUGS (1)
  1. ALSUMA [Suspect]
     Dosage: UNK

REACTIONS (2)
  - DEVICE OCCLUSION [None]
  - DEVICE MALFUNCTION [None]
